FAERS Safety Report 25888312 (Version 1)
Quarter: 2025Q4

REPORT INFORMATION
  Report Type: Spontaneous
  Country: US (occurrence: US)
  Receive Date: 20251007
  Receipt Date: 20251007
  Transmission Date: 20260118
  Serious: Yes (Death)
  Sender: CHIESI
  Company Number: US-CHIESI-2025CHF06965

PATIENT
  Age: 43 Year
  Sex: Female

DRUGS (1)
  1. ELFABRIO [Suspect]
     Active Substance: PEGUNIGALSIDASE ALFA-IWXJ
     Indication: Fabry^s disease
     Dosage: 1 MILLIGRAM/KILOGRAM, QOW
     Route: 042
     Dates: start: 202506

REACTIONS (1)
  - Death [Fatal]

NARRATIVE: CASE EVENT DATE: 20250827
